FAERS Safety Report 6710590-1 (Version None)
Quarter: 2010Q2

REPORT INFORMATION
  Report Type: 
  Country: None (occurrence: None)
  Receive Date: 20100504
  Receipt Date: 20100426
  Transmission Date: 20101027
  Serious: No
  Sender: FDA-Public Use
  Company Number: US-B.I. PHARMACEUTICALS,INC./RIDGEFIELD-2010-BP-04743BP

PATIENT
  Age: 63 Year
  Sex: Male

DRUGS (3)
  1. FLOMAX [Suspect]
     Indication: BENIGN PROSTATIC HYPERPLASIA
     Dosage: 0.4 MG
     Route: 048
     Dates: start: 20100421
  2. CIALIS [Suspect]
     Indication: ERECTILE DYSFUNCTION
     Dates: start: 20100421
  3. LISINOPRIL [Concomitant]
     Indication: HYPERTENSION

REACTIONS (6)
  - FATIGUE [None]
  - LETHARGY [None]
  - NASAL CONGESTION [None]
  - PAIN [None]
  - SEMEN VOLUME DECREASED [None]
  - SLEEP DISORDER [None]
